FAERS Safety Report 8002530-2 (Version None)
Quarter: 2011Q4

REPORT INFORMATION
  Report Type: 
  Country: None (occurrence: None)
  Receive Date: 20111222
  Receipt Date: 20111219
  Transmission Date: 20120403
  Serious: Yes (Hospitalization, Congenital Anomaly, Other)
  Sender: FDA-Public Use
  Company Number: US-PFIZER INC-2011105671

PATIENT
  Sex: Female
  Weight: 2.7 kg

DRUGS (7)
  1. EFFEXOR [Suspect]
     Indication: MAJOR DEPRESSION
     Dosage: 75MG ONE TABLET IN MORNING AND TWO TABLETS IN EVENING
     Route: 064
  2. EFFEXOR XR [Suspect]
     Dosage: 75 MG CAPSULES
     Route: 064
     Dates: start: 20010917
  3. MULTI-VITAMINS [Concomitant]
     Dosage: UNK
     Route: 064
  4. EFFEXOR XR [Suspect]
     Dosage: 150 MG CAPSULES
     Route: 064
     Dates: start: 20050408
  5. EFFEXOR XR [Suspect]
     Indication: DEPRESSION
     Dosage: 75MG ONE CAPSULE IN MORNING AND TWO CAPSULES IN EVENING
     Route: 064
  6. EFFEXOR XR [Suspect]
     Dosage: UNK
     Route: 064
     Dates: start: 20050715
  7. EFFEXOR XR [Suspect]
     Dosage: 150 MG CAPSULES, ONE CAPSULE BY MOUTH
     Route: 064
     Dates: start: 20060601

REACTIONS (15)
  - CEREBRAL PALSY [None]
  - VENTRICULAR SEPTAL DEFECT [None]
  - HYPOTONIA [None]
  - PATENT DUCTUS ARTERIOSUS [None]
  - PULMONARY OEDEMA [None]
  - LUNG HYPERINFLATION [None]
  - CARDIOMEGALY [None]
  - TRICUSPID VALVE INCOMPETENCE [None]
  - CARDIAC FAILURE CONGESTIVE [None]
  - FOETAL EXPOSURE DURING PREGNANCY [None]
  - SPEECH DISORDER [None]
  - ATRIAL SEPTAL DEFECT [None]
  - CHEST X-RAY ABNORMAL [None]
  - CENTRAL NERVOUS SYSTEM LESION [None]
  - GROSS MOTOR DELAY [None]
